FAERS Safety Report 9753124 (Version 1)
Quarter: 2013Q4

REPORT INFORMATION
  Report Type: Spontaneous
  Country: US (occurrence: US)
  Receive Date: 20131213
  Receipt Date: 20131213
  Transmission Date: 20140711
  Serious: Yes (Hospitalization)
  Sender: FDA-Public Use
  Company Number: US-GILEAD-2010-0026336

PATIENT
  Age: 86 Year
  Sex: Female

DRUGS (11)
  1. LETAIRIS [Suspect]
     Indication: PULMONARY HYPERTENSION
     Route: 048
     Dates: start: 20091113, end: 20091230
  2. FUROSEMIDE [Concomitant]
  3. DIOVAN [Concomitant]
  4. DILTIAZEM [Concomitant]
  5. PREDNISONE [Concomitant]
  6. CLARITIN [Concomitant]
  7. AZATHIOPRINE [Concomitant]
  8. SERTRALINE [Concomitant]
  9. KCL [Concomitant]
  10. BONIVA [Concomitant]
  11. LORAZEPAM [Concomitant]

REACTIONS (1)
  - Constipation [Not Recovered/Not Resolved]
